FAERS Safety Report 15232639 (Version 2)
Quarter: 2018Q4

REPORT INFORMATION
  Report Type: Spontaneous
  Country: CH (occurrence: CH)
  Receive Date: 20180802
  Receipt Date: 20180810
  Transmission Date: 20190204
  Serious: Yes (Death)
  Sender: FDA-Public Use
  Company Number: CH-TEVA-2018-CH-935444

PATIENT
  Age: 57 Year
  Sex: Male

DRUGS (13)
  1. LIXIANA 60 MG FILM-COATED TABLETS [Suspect]
     Active Substance: EDOXABAN TOSYLATE
     Indication: ATRIAL FIBRILLATION
     Dosage: 60 MILLIGRAM DAILY;
     Route: 048
     Dates: start: 20160818, end: 20180716
  2. DULOXETIN MEPHA CAPSULES [Suspect]
     Active Substance: DULOXETINE HYDROCHLORIDE
     Dosage: 30 MILLIGRAM DAILY;
     Route: 048
     Dates: start: 20180101, end: 20180716
  3. INEGY 10/20 MG TABLETS [Concomitant]
     Indication: ACQUIRED MIXED HYPERLIPIDAEMIA
     Dosage: INEGY 10/20 MG TABLETS, LONG-TERM MEDICATION
     Route: 048
     Dates: end: 20180716
  4. AMLODIPIN [Concomitant]
     Active Substance: AMLODIPINE BESYLATE
     Indication: HYPERTENSION
     Dosage: AS NECESSARY
     Route: 048
  5. DULOXETIN MEPHA CAPSULES [Suspect]
     Active Substance: DULOXETINE HYDROCHLORIDE
     Indication: DEPRESSION
     Dosage: 60 MILLIGRAM DAILY;
     Route: 048
     Dates: start: 20180101, end: 20180716
  6. METFORMIN-MEPHA LACTAB 850 MG TABLETS [Concomitant]
     Indication: DIABETES MELLITUS
     Dosage: 850 MILLIGRAM DAILY;
     Dates: end: 20180716
  7. TIROSINT 125 MCG SOFT CAPSULES [Concomitant]
     Dosage: 125 MICROGRAM DAILY;
     Route: 048
     Dates: start: 20180101, end: 20180716
  8. CONDROSULF 800 MG TABLETS [Concomitant]
     Indication: OSTEOARTHRITIS
     Dosage: 800 MILLIGRAM DAILY; LONG-TERM MEDICATION
     Dates: end: 20180716
  9. ELTROXIN LF 0.05 MG TABLETS [Concomitant]
     Dosage: .05 MILLIGRAM DAILY;
  10. MOVICOL [Concomitant]
     Active Substance: POLYETHYLENE GLYCOL 3350\POTASSIUM CHLORIDE\SODIUM BICARBONATE\SODIUM CHLORIDE
     Dosage: 1 DOSAGE FORMS DAILY;
  11. CONCOR 10 MG COATED TABLETS [Concomitant]
     Indication: HYPERTENSION
     Dosage: 10 MILLIGRAM DAILY;
     Route: 048
     Dates: start: 20160818, end: 20180716
  12. TORASEMIDE 200 [Concomitant]
     Indication: OEDEMA PERIPHERAL
     Dosage: AS NECESSARY
     Route: 048
  13. CO-DIOVAN 160/25 MG FILM-COATED TABLETS [Concomitant]
     Indication: HYPERTENSION
     Dosage: CO-DIOVAN 160/25 MG FILM-COATED TABLETS, LONG-TERM MEDICATION
     Route: 048
     Dates: end: 20180716

REACTIONS (2)
  - Accidental death [Fatal]
  - Haemorrhage intracranial [Fatal]

NARRATIVE: CASE EVENT DATE: 20180716
